FAERS Safety Report 7576714-1 (Version None)
Quarter: 2011Q2

REPORT INFORMATION
  Report Type: 
  Country: None (occurrence: None)
  Receive Date: 20110628
  Receipt Date: 20110620
  Transmission Date: 20111010
  Serious: Yes (Hospitalization)
  Sender: FDA-Public Use
  Company Number: US-ASTELLAS-2011US003194

PATIENT
  Sex: Male

DRUGS (1)
  1. PROGRAF [Suspect]
     Indication: HEART TRANSPLANT
     Dosage: 5.5 MG, BID
     Route: 048
     Dates: start: 20060917

REACTIONS (2)
  - TREATMENT NONCOMPLIANCE [None]
  - HEART TRANSPLANT REJECTION [None]
